FAERS Safety Report 23393952 (Version 2)
Quarter: 2024Q1

REPORT INFORMATION
  Report Type: Spontaneous
  Country: US (occurrence: US)
  Receive Date: 20240111
  Receipt Date: 20240111
  Transmission Date: 20240410
  Serious: No
  Sender: FDA-Public Use
  Company Number: US-Dermavant-000924

PATIENT
  Age: 39 Year
  Sex: Male

DRUGS (4)
  1. TAPINAROF [Suspect]
     Active Substance: TAPINAROF
     Indication: Psoriasis
     Dosage: APPROXIMATELY 1-2 WEEKS AFTER BEGINNING THERAPY WITH VTAMA, THERAPY WAS DISCONTINUED.
     Dates: start: 202309
  2. METHOTREXATE [Concomitant]
     Active Substance: METHOTREXATE
     Indication: Rheumatoid arthritis
  3. HYDROXYCHLOROQUINE [Concomitant]
     Active Substance: HYDROXYCHLOROQUINE
     Indication: Rheumatoid arthritis
  4. MELOXICAM [Concomitant]
     Active Substance: MELOXICAM
     Indication: Rheumatoid arthritis

REACTIONS (1)
  - Headache [Unknown]
